FAERS Safety Report 7920045-4 (Version None)
Quarter: 2011Q4

REPORT INFORMATION
  Report Type: 
  Country: None (occurrence: None)
  Receive Date: 20111117
  Receipt Date: 20111111
  Transmission Date: 20120403
  Serious: Yes (Hospitalization)
  Sender: FDA-Public Use
  Company Number: BR-ROCHE-1011890

PATIENT
  Sex: Female
  Weight: 45 kg

DRUGS (1)
  1. CLONAZEPAM [Suspect]
     Indication: NERVOUSNESS
     Route: 048
     Dates: start: 20040101

REACTIONS (2)
  - MUSCULOSKELETAL DISORDER [None]
  - MOBILITY DECREASED [None]
